FAERS Safety Report 19447822 (Version 1)
Quarter: 2021Q2

REPORT INFORMATION
  Report Type: Report from Study
  Country: US (occurrence: US)
  Receive Date: 20210622
  Receipt Date: 20210622
  Transmission Date: 20210717
  Serious: Yes (Hospitalization, Other)
  Sender: FDA-Public Use
  Company Number: US-BRISTOL-MYERS SQUIBB COMPANY-BMS-2021-058646

PATIENT
  Age: 89 Year
  Sex: Female

DRUGS (1)
  1. APIXABAN [Suspect]
     Active Substance: APIXABAN
     Indication: EMBOLISM VENOUS
     Dosage: 2.5 MILLIGRAM, QD
     Route: 048
     Dates: start: 202102

REACTIONS (4)
  - Dementia [Recovering/Resolving]
  - Pneumonia aspiration [Recovering/Resolving]
  - Sarcoidosis [Unknown]
  - Intentional product use issue [Unknown]
